FAERS Safety Report 24368072 (Version 1)
Quarter: 2024Q3

REPORT INFORMATION
  Report Type: Spontaneous
  Country: US (occurrence: US)
  Receive Date: 20240926
  Receipt Date: 20240926
  Transmission Date: 20241017
  Serious: Yes (Other)
  Sender: CROWN LABORATORIES
  Company Number: US-Crown Laboratories, Inc.-2162107

PATIENT

DRUGS (1)
  1. PANOXYL ACNE BANISHING BODY (SPRAY) [Suspect]
     Active Substance: SALICYLIC ACID

REACTIONS (3)
  - Dyspnoea [Unknown]
  - Cough [Unknown]
  - Eye irritation [Unknown]

NARRATIVE: CASE EVENT DATE: 20240904
